FAERS Safety Report 5469209-2 (Version None)
Quarter: 2007Q3

REPORT INFORMATION
  Report Type: 
  Country: None (occurrence: None)
  Receive Date: 20070924
  Receipt Date: 20070829
  Transmission Date: 20080115
  Serious: Yes (Other)
  Sender: FDA-Public Use
  Company Number: ENT 2007-0127

PATIENT
  Sex: Male

DRUGS (9)
  1. COMTAN [Suspect]
     Indication: PARKINSON'S DISEASE
     Dosage: 800 MG (200 MG, 4 IN 1 D) ORAL
     Route: 048
     Dates: start: 20051201
  2. SINEMET [Concomitant]
  3. RANITIDINE HCL [Concomitant]
  4. SINEMET CR [Concomitant]
  5. MICARDIS HCT [Concomitant]
  6. MOVEX [Concomitant]
  7. NORVASC [Concomitant]
  8. KALMA [Concomitant]
  9. MADOPAR [Concomitant]

REACTIONS (2)
  - CHOKING [None]
  - DYSPHAGIA [None]
